FAERS Safety Report 8434832-X (Version None)
Quarter: 2012Q2

REPORT INFORMATION
  Report Type: 
  Country: None (occurrence: None)
  Receive Date: 20120611
  Receipt Date: 20120611
  Transmission Date: 20120825
  Serious: Yes (Other)
  Sender: FDA-Public Use
  Company Number: None

PATIENT
  Sex: Male

DRUGS (1)
  1. ZELBORAF [Suspect]
     Dosage: 960MG TWICE A DAY ORAL
     Route: 048
     Dates: start: 20120312, end: 20120514

REACTIONS (3)
  - NAUSEA [None]
  - FATIGUE [None]
  - RASH [None]
